FAERS Safety Report 9033622 (Version 1)
Quarter: 2013Q1

REPORT INFORMATION
  Report Type: Spontaneous
  Country: BR (occurrence: BR)
  Receive Date: 20130128
  Receipt Date: 20130128
  Transmission Date: 20140127
  Serious: Yes (Other)
  Sender: FDA-Public Use
  Company Number: BR-AMGEN-BRASP2013005846

PATIENT
  Age: 41 Year
  Sex: Female
  Weight: 66 kg

DRUGS (2)
  1. ENBREL [Suspect]
     Indication: RHEUMATOID ARTHRITIS
     Dosage: 50 MG, 1X/WEEK
     Route: 058
     Dates: start: 201102, end: 201205
  2. LEFLUNOMIDE [Concomitant]
     Dosage: 1 TABLET OF 20 MG, 1X/DAY (AT NIGHT)
     Dates: start: 2004

REACTIONS (5)
  - Pleural effusion [Not Recovered/Not Resolved]
  - Weight decreased [Recovering/Resolving]
  - Erysipelas [Unknown]
  - Tuberculosis [Unknown]
  - Infectious pleural effusion [Not Recovered/Not Resolved]
